FAERS Safety Report 8372670-7 (Version None)
Quarter: 2012Q2

REPORT INFORMATION
  Report Type: 
  Country: None (occurrence: None)
  Receive Date: 20120521
  Receipt Date: 20120507
  Transmission Date: 20120825
  Serious: Yes (Hospitalization)
  Sender: FDA-Public Use
  Company Number: FR-MYLANLABS-2012S1009535

PATIENT
  Age: 39 Year
  Sex: Female
  Weight: 51 kg

DRUGS (4)
  1. VENLAFAXINE [Suspect]
     Indication: OVERDOSE
     Dosage: EXTENDED RELEASE; UP TO 7.5G (BASED ON EMPTY BLISTERS FOUND AT THE SCENE)
     Route: 048
  2. VENLAFAXINE [Suspect]
     Dosage: EXTENDED RELEASE; PRESCRIBED DOSAGE
     Route: 048
  3. ALPRAZOLAM [Suspect]
     Indication: OVERDOSE
     Dosage: 45MG (BASED ON EMPTY BLISTERS FOUND AT THE SCENE)
     Route: 048
  4. ALPRAZOLAM [Suspect]
     Dosage: PRESCRIBED DOSAGE
     Route: 048

REACTIONS (5)
  - OVERDOSE [None]
  - TOXICITY TO VARIOUS AGENTS [None]
  - SEROTONIN SYNDROME [None]
  - SINUS TACHYCARDIA [None]
  - HYPOGLYCAEMIA [None]
